FAERS Safety Report 25714850 (Version 2)
Quarter: 2025Q4

REPORT INFORMATION
  Report Type: Spontaneous
  Country: US (occurrence: US)
  Receive Date: 20250822
  Receipt Date: 20251022
  Transmission Date: 20260118
  Serious: No
  Sender: MERCK SHARP & DOHME LLC
  Company Number: US-009507513-2314514

PATIENT
  Sex: Female
  Weight: 88.4 kg

DRUGS (40)
  1. SOTATERCEPT [Suspect]
     Active Substance: SOTATERCEPT
     Indication: Product used for unknown indication
  2. SOTATERCEPT [Suspect]
     Active Substance: SOTATERCEPT
  3. SOTATERCEPT [Suspect]
     Active Substance: SOTATERCEPT
  4. SOTATERCEPT [Suspect]
     Active Substance: SOTATERCEPT
  5. REMODULIN [Suspect]
     Active Substance: TREPROSTINIL
     Indication: Pulmonary arterial hypertension
     Dosage: FREQUENCY: CONTINUING
     Route: 058
     Dates: start: 20241004
  6. REMODULIN [Suspect]
     Active Substance: TREPROSTINIL
     Indication: Pulmonary arterial hypertension
     Dosage: FREQUENCY: CONTINUING
     Route: 058
     Dates: start: 20250821
  7. Daily multivitamin (Vitamins nos) Tablet [Concomitant]
  8. ZYRTEC [Concomitant]
     Active Substance: CETIRIZINE HYDROCHLORIDE
  9. CLOBETASOL PROPIONATE [Concomitant]
     Active Substance: CLOBETASOL PROPIONATE
  10. TYLENOL [Concomitant]
     Active Substance: ACETAMINOPHEN
  11. POTASSIUM CHLORIDE [Concomitant]
     Active Substance: POTASSIUM CHLORIDE
  12. SODIUM CHLORIDE [Concomitant]
     Active Substance: SODIUM CHLORIDE
  13. CALTRATE [Concomitant]
     Active Substance: CALCIUM CARBONATE
  14. Co q-10 (Ubidecarenone) [Concomitant]
  15. Ketamine HCL (Ketamine hydrochloride) [Concomitant]
  16. Lecithin (Glycine max extract) [Concomitant]
  17. VELETRI (EPOPROSTENOL SODIUM) [Concomitant]
     Active Substance: EPOPROSTENOL SODIUM
  18. SILDENAFIL CITRATE [Concomitant]
     Active Substance: SILDENAFIL CITRATE
  19. ELIQUIS [Concomitant]
     Active Substance: APIXABAN
  20. Ester-c (Ascorbic acid [Concomitant]
  21. METOPROLOL SUCCINATE [Concomitant]
     Active Substance: METOPROLOL SUCCINATE
  22. Clonidine (Clonidine hydrochloride) [Concomitant]
  23. KETOPROFEN [Concomitant]
     Active Substance: KETOPROFEN
  24. Centrum (Ascorbic acid, Biotin, Calcium pantothenate, Cyanocobalami... [Concomitant]
  25. Aspirin EC (Acetylsalicylic acid) [Concomitant]
  26. OXYGEN [Concomitant]
     Active Substance: OXYGEN
  27. SPIRONOLACTONE [Concomitant]
     Active Substance: SPIRONOLACTONE
  28. Lidocaine HCL (Lidocaine hydrochloride) [Concomitant]
  29. Amitriptyline HCL (Amitriptyline hydrochloride) [Concomitant]
  30. GABAPENTIN [Concomitant]
     Active Substance: GABAPENTIN
  31. Poloxamer (Poloxamer) Gel [Concomitant]
  32. Normal saline (Normal saline) [Concomitant]
  33. AMBRISENTAN [Concomitant]
     Active Substance: AMBRISENTAN
  34. Torsemide (Torasemide) [Concomitant]
  35. METOPROLOL TARTRATE [Concomitant]
     Active Substance: METOPROLOL TARTRATE
  36. Pain relief (Paracetamol) [Concomitant]
  37. ONDANSETRON HYDROCHLORIDE [Concomitant]
     Active Substance: ONDANSETRON HYDROCHLORIDE
  38. TRAMADOL HYDROCHLORIDE [Concomitant]
     Active Substance: TRAMADOL HYDROCHLORIDE
  39. CRESTOR [Concomitant]
     Active Substance: ROSUVASTATIN CALCIUM
  40. OMEPRAZOLE [Concomitant]
     Active Substance: OMEPRAZOLE

REACTIONS (3)
  - Injection site pain [Unknown]
  - Injection site rash [Unknown]
  - Injection site erythema [Unknown]
